FAERS Safety Report 8244022-1 (Version None)
Quarter: 2012Q1

REPORT INFORMATION
  Report Type: 
  Country: None (occurrence: None)
  Receive Date: 20120329
  Receipt Date: 20120316
  Transmission Date: 20120608
  Serious: Yes (Life-Threatening, Hospitalization)
  Sender: FDA-Public Use
  Company Number: ES-BAYER-200011513GDS

PATIENT
  Age: 88 Year
  Sex: Female

DRUGS (3)
  1. ASPIRIN [Suspect]
     Route: 048
  2. ALPRAZOLAM [Concomitant]
     Indication: DEPRESSION
     Dosage: .2 MG (DAILY DOSE), , ORAL
     Route: 048
  3. HYDERGINE [Concomitant]
     Indication: CEREBROVASCULAR DISORDER
     Dosage: 4.5 MG (DAILY DOSE), , ORAL
     Route: 048
     Dates: end: 19990503

REACTIONS (3)
  - ANAEMIA [None]
  - DUODENAL ULCER [None]
  - MELAENA [None]
